FAERS Safety Report 12716489 (Version 1)
Quarter: 2016Q3

REPORT INFORMATION
  Report Type: Report from Study
  Country: BR (occurrence: BR)
  Receive Date: 20160906
  Receipt Date: 20160906
  Transmission Date: 20161109
  Serious: Yes (Death)
  Sender: FDA-Public Use
  Company Number: PHHY2016BR122537

PATIENT
  Sex: Female
  Weight: 56 kg

DRUGS (1)
  1. EXJADE [Suspect]
     Active Substance: DEFERASIROX
     Indication: MYELODYSPLASTIC SYNDROME
     Dosage: 4 DF, UNK
     Route: 065

REACTIONS (5)
  - Gait disturbance [Unknown]
  - Discomfort [Unknown]
  - Anaemia [Fatal]
  - Respiratory disorder [Fatal]
  - Hepatic failure [Fatal]
